FAERS Safety Report 12903473 (Version 1)
Quarter: 2016Q4

REPORT INFORMATION
  Report Type: Spontaneous
  Country: US (occurrence: US)
  Receive Date: 20161102
  Receipt Date: 20161102
  Transmission Date: 20170207
  Serious: Yes (Hospitalization)
  Sender: FDA-Public Use
  Company Number: US-MALLINCKRODT-T201402435

PATIENT
  Age: 8 Year
  Sex: Female
  Weight: 22 kg

DRUGS (21)
  1. LANSOPRAZOLE. [Concomitant]
     Active Substance: LANSOPRAZOLE
     Dosage: 50 MG SUSPENSION DAILY AT BEDTIME
  2. TIZANIDINE. [Suspect]
     Active Substance: TIZANIDINE
     Dosage: 4 MG MORNING PLUS 8 MG NIGHT
  3. TYLENOL [Concomitant]
     Active Substance: ACETAMINOPHEN
     Indication: PYREXIA
  4. IBUPROFEN. [Concomitant]
     Active Substance: IBUPROFEN
     Dosage: 240 MG EVERY 6 HOURS FOR PAIN OR FEVER IF TYLENOL INEFFECTIVE
     Dates: end: 20140415
  5. POLYETHYLENE GLYCOL [Concomitant]
     Active Substance: POLYETHYLENE GLYCOLS
     Dosage: 12.5 ML AT BEDTIME
  6. AZITHROMYCIN ANHYDROUS. [Concomitant]
     Active Substance: AZITHROMYCIN ANHYDROUS
     Dosage: 100 MG EVERY MON., WED, AND FRI.
  7. DIAZEPAM. [Concomitant]
     Active Substance: DIAZEPAM
     Dosage: 1-2 MG EVERY 6 HOURS
     Dates: start: 20140508
  8. GABLOFEN [Suspect]
     Active Substance: BACLOFEN
     Indication: MUSCLE SPASTICITY
     Dosage: 50 MCG/DAY
     Route: 037
     Dates: end: 20140415
  9. GABLOFEN [Suspect]
     Active Substance: BACLOFEN
     Indication: CEREBRAL PALSY
  10. GABLOFEN [Suspect]
     Active Substance: BACLOFEN
     Indication: MUSCLE SPASTICITY
     Dosage: 727.2 ?G, QD
     Route: 037
     Dates: start: 20140415, end: 20140507
  11. MIRALAX [Suspect]
     Active Substance: POLYETHYLENE GLYCOL 3350
     Dosage: 2.5 TEASPOONS DAILY
  12. BACLOFEN. [Concomitant]
     Active Substance: BACLOFEN
     Dosage: 10 MG EVERY 4 HOURS AS NEEDED FOR BACLOFEN WITHDRAWAL
  13. CETIRIZINE [Suspect]
     Active Substance: CETIRIZINE HYDROCHLORIDE
     Dosage: 5 MG, QD
  14. ATROPINE. [Concomitant]
     Active Substance: ATROPINE
     Dosage: 2 DROPS 3 TIMES DAILY
     Route: 002
  15. GABLOFEN [Suspect]
     Active Substance: BACLOFEN
     Dosage: 804.6 ?G, QD
     Route: 037
     Dates: start: 20140508
  16. ALBUTEROL. [Concomitant]
     Active Substance: ALBUTEROL
     Dosage: 2.5 MG SOLUTION EVERY 4 HOURS AS NEEDED FOR ILLNESS
  17. BUDESONIDE. [Concomitant]
     Active Substance: BUDESONIDE
     Dosage: 0.5 MG DAILY IN MORNING WITH ADD. DOSE IN EVENING DURING ILLNESS
  18. SINGULAIR [Concomitant]
     Active Substance: MONTELUKAST SODIUM
     Dosage: 2 TABS DAILY
  19. TYLENOL [Concomitant]
     Active Substance: ACETAMINOPHEN
     Indication: PAIN
     Dosage: 240 MG EVERY 4 HOURS
  20. ORAPRED [Concomitant]
     Active Substance: PREDNISOLONE SODIUM PHOSPHATE
     Dosage: 7.5 ML TWICE DAILY
  21. DIAZEPAM. [Concomitant]
     Active Substance: DIAZEPAM
     Dosage: 7.5MG AS NEEDED FOR DISTRESS SPELLS
     Route: 054
     Dates: end: 20140415

REACTIONS (10)
  - Cerebrospinal fluid leakage [Unknown]
  - Hypertonia [None]
  - Withdrawal syndrome [Recovered/Resolved]
  - Poor quality sleep [Unknown]
  - Crying [None]
  - Irritability [Unknown]
  - Swelling [Unknown]
  - Strabismus [Unknown]
  - Discomfort [Unknown]
  - Device occlusion [Recovered/Resolved]

NARRATIVE: CASE EVENT DATE: 201403
